FAERS Safety Report 4559369-X (Version None)
Quarter: 2005Q1

REPORT INFORMATION
  Report Type: 
  Country: None (occurrence: None)
  Receive Date: 20050124
  Receipt Date: 20050113
  Transmission Date: 20050727
  Serious: Yes (Hospitalization, Other)
  Sender: FDA-Public Use
  Company Number: US-GLAXOSMITHKLINE-A0540673A

PATIENT
  Age: 74 Year
  Sex: Male
  Weight: 78 kg

DRUGS (6)
  1. ECOTRIN REGULAR STRENGTH TABLETS [Suspect]
     Route: 048
     Dates: start: 20010101
  2. ATENOLOL [Concomitant]
     Indication: HYPERTENSION
  3. UNKNOWN EAR MEDICATION [Concomitant]
  4. ZYRTEC [Concomitant]
     Indication: SINUSITIS
  5. MULTI-VITAMIN [Concomitant]
  6. COENZYME Q10 [Concomitant]

REACTIONS (12)
  - ABASIA [None]
  - DIZZINESS [None]
  - EAR INFECTION [None]
  - HYPERSENSITIVITY [None]
  - NYSTAGMUS [None]
  - POLLAKIURIA [None]
  - PROSTATE CANCER [None]
  - RETCHING [None]
  - VENTRICULAR EXTRASYSTOLES [None]
  - VERTIGO [None]
  - VISUAL ACUITY REDUCED [None]
  - VOMITING [None]
